FAERS Safety Report 5517949-9 (Version None)
Quarter: 2007Q4

REPORT INFORMATION
  Report Type: 
  Country: None (occurrence: None)
  Receive Date: 20071115
  Receipt Date: 20071105
  Transmission Date: 20080405
  Serious: Yes (Hospitalization)
  Sender: FDA-Public Use
  Company Number: PHHO2007DE18396

PATIENT
  Age: 56 Year
  Sex: Male

DRUGS (7)
  1. LBH589 [Suspect]
     Indication: ACUTE MYELOID LEUKAEMIA
     Dosage: 80 MG QD M/W/F
     Route: 048
     Dates: start: 20071001, end: 20071029
  2. DICLOFENAC SODIUM [Suspect]
  3. AMBISOME [Suspect]
  4. LEVOFLOXACIN [Concomitant]
  5. LASIX [Concomitant]
  6. TRIAMTERENE AND HYDROCHLOROTHIAZIDE [Concomitant]
  7. ALLOPURINOL [Concomitant]

REACTIONS (8)
  - ASCITES [None]
  - FLUID INTAKE REDUCED [None]
  - HEPATIC FAILURE [None]
  - NEPHROPATHY TOXIC [None]
  - OEDEMA [None]
  - RENAL FAILURE ACUTE [None]
  - URINE OUTPUT DECREASED [None]
  - WEIGHT INCREASED [None]
